FAERS Safety Report 13713027 (Version 1)
Quarter: 2017Q3

REPORT INFORMATION
  Report Type: Report from Study
  Country: ZA (occurrence: ZA)
  Receive Date: 20170704
  Receipt Date: 20170704
  Transmission Date: 20171127
  Serious: Yes (Hospitalization)
  Sender: FDA-Public Use
  Company Number: PHHY2017ZA095950

PATIENT
  Sex: Male

DRUGS (2)
  1. SLOW K [Suspect]
     Active Substance: POTASSIUM CHLORIDE
     Indication: MINERAL SUPPLEMENTATION
     Dosage: 600 MG, UNK
     Route: 048
     Dates: start: 20170105
  2. TAREG [Suspect]
     Active Substance: VALSARTAN
     Indication: HYPERTENSION
     Dosage: 80 MG, UNK
     Route: 048
     Dates: start: 20170105

REACTIONS (1)
  - Pneumonia [Unknown]
